FAERS Safety Report 15760046 (Version 3)
Quarter: 2021Q3

REPORT INFORMATION
  Report Type: Report from Study
  Country: US (occurrence: US)
  Receive Date: 20181226
  Receipt Date: 20210819
  Transmission Date: 20211014
  Serious: Yes (Death, Hospitalization, Other)
  Sender: FDA-Public Use
  Company Number: PHHY2018US188741

PATIENT
  Age: 18 Year
  Sex: Male
  Weight: 82.3 kg

DRUGS (17)
  1. POSACONAZOLE [Concomitant]
     Active Substance: POSACONAZOLE
     Indication: PRODUCT USED FOR UNKNOWN INDICATION
     Dosage: UNK
     Route: 065
  2. LEVAQUIN [Concomitant]
     Active Substance: LEVOFLOXACIN
     Indication: PRODUCT USED FOR UNKNOWN INDICATION
     Dosage: UNK
     Route: 065
  3. LEVOFLOXACIN. [Concomitant]
     Active Substance: LEVOFLOXACIN
     Indication: PRODUCT USED FOR UNKNOWN INDICATION
     Dosage: UNK
     Route: 065
  4. WHITE PETROLEUM [Concomitant]
     Active Substance: PETROLATUM
     Indication: PRODUCT USED FOR UNKNOWN INDICATION
     Dosage: UNK (MINERAL OIL)
     Route: 065
  5. FLUDARABINE [Concomitant]
     Active Substance: FLUDARABINE PHOSPHATE
     Indication: PRODUCT USED FOR UNKNOWN INDICATION
     Dosage: UNK
     Route: 065
  6. ACYCLOVIR. [Concomitant]
     Active Substance: ACYCLOVIR
     Indication: PRODUCT USED FOR UNKNOWN INDICATION
     Dosage: UNK
     Route: 065
  7. MAGNESIUM AMINO ACID CHELATE [Concomitant]
     Active Substance: MAGNESIUM
     Indication: PRODUCT USED FOR UNKNOWN INDICATION
     Dosage: UNK
     Route: 065
  8. ALBUTEROL. [Concomitant]
     Active Substance: ALBUTEROL
     Dosage: UNK, PRN (2 PUFF)
     Route: 065
  9. URSODIOL. [Concomitant]
     Active Substance: URSODIOL
     Indication: PRODUCT USED FOR UNKNOWN INDICATION
     Dosage: UNK
     Route: 065
  10. ZOSYN [Concomitant]
     Active Substance: PIPERACILLIN SODIUM\TAZOBACTAM SODIUM
     Indication: GASTROINTESTINAL DISORDER PROPHYLAXIS
     Dosage: UNK
     Route: 065
  11. MICAFUNGIN. [Concomitant]
     Active Substance: MICAFUNGIN SODIUM
     Indication: PRODUCT USED FOR UNKNOWN INDICATION
     Dosage: UNK
     Route: 065
  12. CHOLECALCIFEROL [Concomitant]
     Active Substance: CHOLECALCIFEROL
     Indication: PRODUCT USED FOR UNKNOWN INDICATION
     Dosage: UNK
     Route: 065
  13. ALBUTEROL. [Concomitant]
     Active Substance: ALBUTEROL
     Indication: PRODUCT USED FOR UNKNOWN INDICATION
     Dosage: UNK UNK, PRN (2 PUFF)
     Route: 065
  14. ONDANSETRON [Concomitant]
     Active Substance: ONDANSETRON
     Indication: PRODUCT USED FOR UNKNOWN INDICATION
     Dosage: UNK
     Route: 065
  15. KYMRIAH [Suspect]
     Active Substance: TISAGENLECLEUCEL
     Indication: DIFFUSE LARGE B-CELL LYMPHOMA
     Dosage: 30 ML
     Route: 042
     Dates: start: 20181011
  16. CYTOXAN [Concomitant]
     Active Substance: CYCLOPHOSPHAMIDE
     Indication: PRODUCT USED FOR UNKNOWN INDICATION
     Dosage: UNK
     Route: 065
  17. RANITIDINE. [Concomitant]
     Active Substance: RANITIDINE
     Indication: PRODUCT USED FOR UNKNOWN INDICATION
     Dosage: UNK
     Route: 065

REACTIONS (41)
  - Enteritis [Unknown]
  - Hypophosphataemia [Not Recovered/Not Resolved]
  - Fluid overload [Not Recovered/Not Resolved]
  - Fatigue [Not Recovered/Not Resolved]
  - Hypofibrinogenaemia [Unknown]
  - Multiple organ dysfunction syndrome [Fatal]
  - Febrile neutropenia [Not Recovered/Not Resolved]
  - Immunodeficiency [Not Recovered/Not Resolved]
  - Acute kidney injury [Not Recovered/Not Resolved]
  - Blood creatinine increased [Unknown]
  - Blood uric acid increased [Unknown]
  - Jaundice cholestatic [Unknown]
  - Hypokalaemia [Not Recovered/Not Resolved]
  - Acute respiratory failure [Not Recovered/Not Resolved]
  - Serum ferritin increased [Unknown]
  - Polyuria [Unknown]
  - Malignant neoplasm progression [Unknown]
  - Inflammatory marker increased [Unknown]
  - Hypoxia [Not Recovered/Not Resolved]
  - Transaminases increased [Unknown]
  - Cholestasis [Unknown]
  - Pancytopenia [Unknown]
  - Thrombocytopenia [Unknown]
  - Ocular icterus [Unknown]
  - Anuria [Unknown]
  - Diffuse large B-cell lymphoma recurrent [Unknown]
  - Renal impairment [Unknown]
  - Hepatic function abnormal [Unknown]
  - Hypercalcaemia [Recovering/Resolving]
  - Haemophagocytic lymphohistiocytosis [Fatal]
  - Blood urea increased [Unknown]
  - Pallor [Not Recovered/Not Resolved]
  - Blood bilirubin increased [Unknown]
  - Abdominal tenderness [Unknown]
  - Cytokine release syndrome [Unknown]
  - Tachycardia [Unknown]
  - Tachypnoea [Unknown]
  - Cough [Not Recovered/Not Resolved]
  - Pyrexia [Unknown]
  - Coagulopathy [Unknown]
  - Splenomegaly [Unknown]

NARRATIVE: CASE EVENT DATE: 20181028
